FAERS Safety Report 8510675-3 (Version None)
Quarter: 2012Q3

REPORT INFORMATION
  Report Type: 
  Country: None (occurrence: None)
  Receive Date: 20120709
  Receipt Date: 20120709
  Transmission Date: 20120928
  Serious: Yes (Other)
  Sender: FDA-Public Use
  Company Number: None

PATIENT
  Age: 53 Year
  Sex: Female
  Weight: 54.4316 kg

DRUGS (1)
  1. ROGAINE (FOR MEN) [Suspect]
     Indication: ALOPECIA
     Dosage: 1ML ONCE DAILY TOP
     Route: 061
     Dates: start: 20120620, end: 20120622

REACTIONS (2)
  - OEDEMA PERIPHERAL [None]
  - POSTMENOPAUSAL HAEMORRHAGE [None]
